FAERS Safety Report 17605730 (Version 1)
Quarter: 2020Q1

REPORT INFORMATION
  Report Type: Report from Study
  Country: NO (occurrence: NO)
  Receive Date: 20200331
  Receipt Date: 20200331
  Transmission Date: 20200409
  Serious: Yes (Hospitalization)
  Sender: FDA-Public Use
  Company Number: NO-TAKEDA-2020TUS015221

PATIENT
  Sex: Male

DRUGS (6)
  1. LOSARTAN + HIDROCLOROTIAZIDA       /01284801/ [Concomitant]
     Active Substance: HYDROCHLOROTHIAZIDE\LOSARTAN POTASSIUM
     Dosage: 100/25 MILLIGRAM
  2. SOMAC [Concomitant]
     Active Substance: PANTOPRAZOLE SODIUM
     Dosage: 40 MILLIGRAM
  3. VEDOLIZUMAB [Suspect]
     Active Substance: VEDOLIZUMAB
     Indication: INFLAMMATORY BOWEL DISEASE
     Dosage: UNK
     Route: 042
     Dates: start: 20170523
  4. NEURONTIN [Concomitant]
     Active Substance: GABAPENTIN
     Dosage: 300 MILLIGRAM, TID
  5. CLOPIDROGEL SANDOZ [Concomitant]
     Active Substance: CLOPIDOGREL BISULFATE
     Dosage: 75 MILLIGRAM
  6. MOXONIDIN [Concomitant]
     Active Substance: MOXONIDINE
     Dosage: 0.4 MILLIGRAM

REACTIONS (2)
  - Pelvic pain [Recovered/Resolved with Sequelae]
  - Perineal pain [Recovered/Resolved with Sequelae]

NARRATIVE: CASE EVENT DATE: 20190406
